FAERS Safety Report 16242284 (Version 1)
Quarter: 2019Q2

REPORT INFORMATION
  Report Type: Spontaneous
  Country: DE (occurrence: DE)
  Receive Date: 20190426
  Receipt Date: 20190426
  Transmission Date: 20190711
  Serious: Yes (Other)
  Sender: FDA-Public Use
  Company Number: DE-ALKEM LABORATORIES LIMITED-DE-ALKEM-2017-02240

PATIENT
  Age: 1 Day
  Sex: Female
  Weight: 3 kg

DRUGS (3)
  1. MINPROSTIN E2 [Suspect]
     Active Substance: DINOPROSTONE
     Dosage: UNKNOWN
     Route: 064
  2. QUETIAPINE FUMARATE. [Suspect]
     Active Substance: QUETIAPINE FUMARATE
     Dosage: UNKNOWN
     Route: 064
  3. VENLAFAXINE [Suspect]
     Active Substance: VENLAFAXINE HYDROCHLORIDE
     Dosage: UNKNOWN
     Route: 064

REACTIONS (3)
  - Small for dates baby [Recovering/Resolving]
  - Foetal exposure during pregnancy [Unknown]
  - Hypoglycaemia neonatal [Recovered/Resolved]

NARRATIVE: CASE EVENT DATE: 20161014
